FAERS Safety Report 11359071 (Version 5)
Quarter: 2015Q4

REPORT INFORMATION
  Report Type: Spontaneous
  Country: IT (occurrence: IT)
  Receive Date: 20150807
  Receipt Date: 20151001
  Transmission Date: 20160304
  Serious: Yes (Life-Threatening, Other)
  Sender: FDA-Public Use
  Company Number: IT-SA-2015SA115938

PATIENT
  Age: 18 Year
  Sex: Female

DRUGS (1)
  1. FERLIXIT [Suspect]
     Active Substance: SODIUM FERRIC GLUCONATE COMPLEX
     Indication: IRON DEFICIENCY ANAEMIA
     Dosage: FORM: SOLUTION FOR ORAL AND IV USE?ROUTE: INTRAVENOUS INFUSION DOSE:1 UNIT(S)
     Dates: start: 20150729, end: 20150729

REACTIONS (6)
  - Hypotension [Recovering/Resolving]
  - Malaise [Recovering/Resolving]
  - Dysphonia [Recovering/Resolving]
  - Presyncope [Recovering/Resolving]
  - Noninfective conjunctivitis [Recovering/Resolving]
  - Hyperhidrosis [Recovering/Resolving]

NARRATIVE: CASE EVENT DATE: 20150729
